FAERS Safety Report 8515500-2 (Version None)
Quarter: 2012Q3

REPORT INFORMATION
  Report Type: 
  Country: None (occurrence: None)
  Receive Date: 20120705
  Receipt Date: 20120620
  Transmission Date: 20120928
  Serious: Yes (Disabling)
  Sender: FDA-Public Use
  Company Number: US-2012-10676

PATIENT
  Age: 42 Year
  Sex: Female

DRUGS (5)
  1. OPC-41061 (TOLVAPTAN) TABLET, 15 MG [Suspect]
     Indication: CONGENITAL CYSTIC KIDNEY DISEASE
     Dosage: 45/15;60 MG, DAILY DOSE, ORAL
     Route: 048
     Dates: start: 20120202
  2. OPC-41061 (TOLVAPTAN) TABLET, 15 MG [Suspect]
     Indication: CONGENITAL CYSTIC KIDNEY DISEASE
     Dosage: 45/15;60 MG, DAILY DOSE, ORAL
     Route: 048
     Dates: start: 20111206, end: 20120124
  3. CARVEDILOL [Concomitant]
  4. DIOVAN [Concomitant]
  5. RAMIPRIL [Concomitant]

REACTIONS (2)
  - POLLAKIURIA [None]
  - URINARY INCONTINENCE [None]
